FAERS Safety Report 5673051-7 (Version None)
Quarter: 2008Q1

REPORT INFORMATION
  Report Type: 
  Country: None (occurrence: None)
  Receive Date: 20080319
  Receipt Date: 20080102
  Transmission Date: 20080703
  Serious: No
  Sender: FDA-Public Use
  Company Number: US-ASTRAZENECA-2008UW00214

PATIENT
  Age: 52 Year
  Sex: Male
  Weight: 108.9 kg

DRUGS (8)
  1. SYMBICORT [Suspect]
     Indication: ASTHMA
     Dosage: 160/4.5 MCG TWO PUFFS BID
     Route: 055
     Dates: start: 20071201
  2. AMIODARONE HCL [Concomitant]
  3. DIGOXIN [Concomitant]
  4. FUROSEMIDE [Concomitant]
  5. WARFARIN SODIUM [Concomitant]
  6. CARVEDILOL [Concomitant]
  7. BUPROPION HCL [Concomitant]
  8. LISINOPRIL [Concomitant]

REACTIONS (3)
  - ASTHENIA [None]
  - BONE PAIN [None]
  - PAIN [None]
